FAERS Safety Report 12435877 (Version 2)
Quarter: 2016Q3

REPORT INFORMATION
  Report Type: Spontaneous
  Country: RU (occurrence: RU)
  Receive Date: 20160604
  Receipt Date: 20160902
  Transmission Date: 20161109
  Serious: Yes (Hospitalization)
  Sender: FDA-Public Use
  Company Number: RU-ACCORD-040948

PATIENT
  Age: 46 Year

DRUGS (2)
  1. TRASTUZUMAB [Suspect]
     Active Substance: TRASTUZUMAB
     Indication: INVASIVE DUCTAL BREAST CARCINOMA
     Dates: start: 20130514
  2. PACLITAXEL/PACLITAXEL LIPOSOME [Suspect]
     Active Substance: PACLITAXEL
     Indication: METASTASES TO LIVER
     Dosage: SIX TREATMENTS WERE CONDUCTED WITH TAXANES

REACTIONS (8)
  - Hypoventilation [Unknown]
  - Cardiomyopathy [Unknown]
  - Pericarditis [Unknown]
  - Pericardial effusion [Unknown]
  - Hydrothorax [Unknown]
  - Cardiac failure chronic [Unknown]
  - Tricuspid valve incompetence [None]
  - Mitral valve incompetence [None]

NARRATIVE: CASE EVENT DATE: 2014
